FAERS Safety Report 17279564 (Version 1)
Quarter: 2020Q1

REPORT INFORMATION
  Report Type: Spontaneous
  Country: FR (occurrence: FR)
  Receive Date: 20200116
  Receipt Date: 20200116
  Transmission Date: 20200409
  Serious: Yes (Death)
  Sender: FDA-Public Use
  Company Number: FR-MYLANLABS-2020M1005079

PATIENT
  Age: 26 Year
  Sex: Female
  Weight: 29.5 kg

DRUGS (8)
  1. ESOMEPRAZOLE. [Concomitant]
     Active Substance: ESOMEPRAZOLE MAGNESIUM
     Dosage: UNK
  2. PAROXETINE. [Suspect]
     Active Substance: PAROXETINE
     Indication: PRODUCT USED FOR UNKNOWN INDICATION
     Dosage: 21 CP DE 20 MG
     Route: 048
     Dates: start: 20191012, end: 20191012
  3. OXAZEPAM. [Concomitant]
     Active Substance: OXAZEPAM
     Indication: DEPRESSION
     Dosage: UNK
     Route: 048
  4. DOLIPRANE [Suspect]
     Active Substance: ACETAMINOPHEN
     Indication: PRODUCT USED FOR UNKNOWN INDICATION
     Dosage: 30 GELULES A 500 MG
     Route: 048
     Dates: start: 20191012, end: 20191012
  5. VENLAFAXINE [Concomitant]
     Active Substance: VENLAFAXINE HYDROCHLORIDE
     Indication: DEPRESSION
     Dosage: 75 MILLIGRAM
     Route: 048
  6. LOXAPAC                            /00401801/ [Suspect]
     Active Substance: LOXAPINE
     Indication: PRODUCT USED FOR UNKNOWN INDICATION
     Dosage: 1 FLACON DE 60 ML A 25 MG/ML
     Route: 048
     Dates: start: 20191012, end: 20191012
  7. ENOXAPARINE SODIQUE [Concomitant]
     Active Substance: ENOXAPARIN SODIUM
     Dosage: UNK
  8. SEROPLEX [Suspect]
     Active Substance: ESCITALOPRAM OXALATE
     Indication: PRODUCT USED FOR UNKNOWN INDICATION
     Dosage: 1 FLACON DE 20 ML A 20 MG/ML
     Route: 048
     Dates: start: 20191012, end: 20191012

REACTIONS (1)
  - Poisoning deliberate [Fatal]

NARRATIVE: CASE EVENT DATE: 20191012
